FAERS Safety Report 14189977 (Version 4)
Quarter: 2018Q2

REPORT INFORMATION
  Report Type: Report from Study
  Country: US (occurrence: US)
  Receive Date: 20171115
  Receipt Date: 20180430
  Transmission Date: 20180711
  Serious: Yes (Hospitalization, Other)
  Sender: FDA-Public Use
  Company Number: US-GILEAD-2017-0303834

PATIENT
  Age: 73 Year
  Sex: Male

DRUGS (6)
  1. AMBRISENTAN [Suspect]
     Active Substance: AMBRISENTAN
     Indication: PRODUCT USED FOR UNKNOWN INDICATION
     Dosage: 10 MG, QD
     Route: 065
     Dates: start: 20120208
  2. AMBRISENTAN [Suspect]
     Active Substance: AMBRISENTAN
     Dosage: 5 MG, QD
     Route: 065
  3. REMODULIN [Suspect]
     Active Substance: TREPROSTINIL
     Dosage: 24 NG, Q1MINUTE
     Route: 042
  4. ADCIRCA [Concomitant]
     Active Substance: TADALAFIL
  5. DILTIAZEM. [Concomitant]
     Active Substance: DILTIAZEM
  6. REMODULIN [Suspect]
     Active Substance: TREPROSTINIL
     Indication: PRODUCT USED FOR UNKNOWN INDICATION
     Dosage: 60 NG, Q1MINUTE
     Route: 042

REACTIONS (12)
  - Hypotension [Not Recovered/Not Resolved]
  - Asthenia [Not Recovered/Not Resolved]
  - Anaemia [Not Recovered/Not Resolved]
  - Haematochezia [Not Recovered/Not Resolved]
  - Platelet count decreased [Not Recovered/Not Resolved]
  - Blood potassium decreased [Not Recovered/Not Resolved]
  - Renal impairment [Unknown]
  - Renal disorder [Not Recovered/Not Resolved]
  - Gastrointestinal arteriovenous malformation [Not Recovered/Not Resolved]
  - Laboratory test abnormal [Unknown]
  - Infusion site pain [Not Recovered/Not Resolved]
  - Scleroderma [Not Recovered/Not Resolved]
